FAERS Safety Report 8936799 (Version 3)
Quarter: 2013Q1

REPORT INFORMATION
  Report Type: Spontaneous
  Country: US (occurrence: US)
  Receive Date: 20121130
  Receipt Date: 20130114
  Transmission Date: 20140127
  Serious: Yes (Other)
  Sender: FDA-Public Use
  Company Number: US-PFIZER INC-2012299482

PATIENT
  Age: 70 Year
  Sex: Female
  Weight: 83.9 kg

DRUGS (14)
  1. LYRICA [Suspect]
     Indication: NEUROPATHY PERIPHERAL
     Dosage: 50 MG, 1X/DAY
     Route: 048
     Dates: start: 201211, end: 201211
  2. LYRICA [Suspect]
     Indication: DIABETIC NEUROPATHY
     Dosage: 50 MG, 2X/DAY
     Route: 048
     Dates: start: 201211, end: 201211
  3. LYRICA [Suspect]
     Dosage: 50 MG, 3X/DAY
     Route: 048
     Dates: start: 201211, end: 201211
  4. LYRICA [Suspect]
     Dosage: 50 MG, 2X/DAY
     Dates: start: 201211
  5. LYRICA [Suspect]
     Dosage: 150 MG, 2X/DAY
     Route: 048
     Dates: start: 2012
  6. GABAPENTIN [Suspect]
     Indication: NEUROPATHY PERIPHERAL
     Dosage: UNK
  7. LEVOTHYROXINE [Concomitant]
     Indication: HYPOTHYROIDISM
     Dosage: 50 UG, DAILY
  8. LEVOTHYROXINE [Concomitant]
     Indication: THYROID DISORDER
  9. METFORMIN [Concomitant]
     Indication: DIABETES MELLITUS
     Dosage: 500 MG, 2X/DAY
  10. PRAVASTATIN [Concomitant]
     Indication: BLOOD CHOLESTEROL INCREASED
     Dosage: UNK
  11. CENTRUM SILVER [Concomitant]
     Dosage: UNK
  12. CALCIUM WITH VITAMIN D [Concomitant]
     Dosage: 600/400MG, 2X/DAY
  13. AMITRIPTYLINE [Concomitant]
     Indication: NEUROPATHY PERIPHERAL
     Dosage: 125 MG, DAILY AT NIGHT
  14. CALTRATE WITH VITAMIN D [Concomitant]
     Dosage: UNK, DAILY

REACTIONS (10)
  - Cataract [Unknown]
  - Dizziness [Recovered/Resolved]
  - Euphoric mood [Recovered/Resolved]
  - Glycosylated haemoglobin increased [Unknown]
  - Drug effect incomplete [Unknown]
  - Somnolence [Not Recovered/Not Resolved]
  - Vision blurred [Not Recovered/Not Resolved]
  - Drug ineffective [Unknown]
  - Rash [Unknown]
  - Local swelling [Unknown]
